FAERS Safety Report 5694356-X (Version None)
Quarter: 2008Q2

REPORT INFORMATION
  Report Type: 
  Country: None (occurrence: None)
  Receive Date: 20080402
  Receipt Date: 20080320
  Transmission Date: 20081010
  Serious: Yes (Hospitalization)
  Sender: FDA-Public Use
  Company Number: MEDI-0006585

PATIENT
  Age: 7 Month
  Sex: Male

DRUGS (3)
  1. SYNAGIS [Suspect]
     Indication: CARDIAC DISORDER
     Dates: start: 20071017, end: 20071213
  2. SYNAGIS [Suspect]
     Indication: CARDIAC DISORDER
     Dates: start: 20071017
  3. SYNAGIS [Suspect]
     Indication: CARDIAC DISORDER
     Dates: start: 20071116

REACTIONS (5)
  - BRADYCARDIA [None]
  - CARDIAC FAILURE [None]
  - HEPATOMEGALY [None]
  - RESPIRATORY FAILURE [None]
  - VOMITING [None]
